FAERS Safety Report 21458338 (Version 1)
Quarter: 2022Q4

REPORT INFORMATION
  Report Type: Spontaneous
  Country: JP (occurrence: JP)
  Receive Date: 20221014
  Receipt Date: 20221014
  Transmission Date: 20230112
  Serious: Yes (Other)
  Sender: FDA-Public Use
  Company Number: JP-PFIZER INC-PV202200075735

PATIENT
  Age: 7 Decade
  Sex: Male

DRUGS (4)
  1. LORAZEPAM [Suspect]
     Active Substance: LORAZEPAM
  2. CERNITIN POLLEN EXTRACTS [Concomitant]
     Indication: Benign prostatic hyperplasia
     Dosage: 378 MG, DAILY
     Route: 048
  3. VALPROIC ACID [Concomitant]
     Active Substance: VALPROIC ACID
     Dosage: 200 MG, DAILY
     Route: 048
  4. VALPROIC ACID [Concomitant]
     Active Substance: VALPROIC ACID
     Dosage: 300 MG, DAILY
     Route: 048

REACTIONS (2)
  - Urinary retention [Recovering/Resolving]
  - Drug dependence [Recovering/Resolving]
